FAERS Safety Report 5861751-5 (Version None)
Quarter: 2008Q3

REPORT INFORMATION
  Report Type: 
  Country: None (occurrence: None)
  Receive Date: 20080827
  Receipt Date: 20080708
  Transmission Date: 20090109
  Serious: No
  Sender: FDA-Public Use
  Company Number: US-ABBOTT-08P-163-0461991-00

PATIENT
  Sex: Male

DRUGS (4)
  1. NIASPAN [Suspect]
     Indication: BLOOD CHOLESTEROL
     Dates: end: 20060101
  2. ACETYLSALICYLIC ACID SRT [Concomitant]
     Indication: PAIN
     Route: 048
  3. OVER THE COUNTER CREAM EUCERIN [Concomitant]
     Indication: PAIN
     Route: 061
  4. OVER THE COUNTER CREAM EUCERIN [Concomitant]
     Indication: PSORIASIS

REACTIONS (1)
  - BURNING SENSATION [None]
